FAERS Safety Report 18431012 (Version 2)
Quarter: 2020Q4

REPORT INFORMATION
  Report Type: Report from Study
  Country: US (occurrence: US)
  Receive Date: 20201027
  Receipt Date: 20201102
  Transmission Date: 20210114
  Serious: Yes (Life-Threatening, Hospitalization)
  Sender: FDA-Public Use
  Company Number: US-ROCHE-2702062

PATIENT
  Age: 37 Year
  Sex: Female
  Weight: 85.3 kg

DRUGS (4)
  1. BLINDED ATEZOLIZUMAB [Suspect]
     Active Substance: ATEZOLIZUMAB
     Indication: INVASIVE BREAST CARCINOMA
     Dosage: DATE OF MOST RECENT DOSE OF BLINDED ATEZOLIZUMAB PRIOR TO ONSET OF SAE: 21/AUG/2020
     Route: 042
     Dates: start: 20190920
  2. PACLITAXEL. [Suspect]
     Active Substance: PACLITAXEL
     Indication: INVASIVE BREAST CARCINOMA
     Dosage: DATE OF MOST RECENT DOSE OF PACLITAXEL PRIOR TO ONSET OF SAE: 21/AUG/2020
     Route: 042
     Dates: start: 20190920
  3. PERTUZUMAB. [Suspect]
     Active Substance: PERTUZUMAB
     Indication: INVASIVE BREAST CARCINOMA
     Dosage: 840MG IV C1D1 ONLY?DATE OF MOST RECENT DOSE OF PERTUZUMAB PRIOR TO ONSET OF SAE: 21/SEP/2020
     Route: 042
     Dates: start: 20190920
  4. TRASTUZUMAB. [Suspect]
     Active Substance: TRASTUZUMAB
     Indication: INVASIVE BREAST CARCINOMA
     Dosage: 8MG/KG IV C1D1 ONLY?DATE OF MOST RECENT DOSE OF TRASTUZUMAB PRIOR TO ONSET OF SAE: 21/AUG/2020
     Route: 042
     Dates: start: 20190920

REACTIONS (1)
  - Hydrocephalus [Recovered/Resolved with Sequelae]

NARRATIVE: CASE EVENT DATE: 20200918
